FAERS Safety Report 4554504-1 (Version None)
Quarter: 2005Q1

REPORT INFORMATION
  Report Type: 
  Country: None (occurrence: None)
  Receive Date: 20050114
  Receipt Date: 20040614
  Transmission Date: 20050727
  Serious: Yes (Hospitalization)
  Sender: FDA-Public Use
  Company Number: GXKR2004US00630

PATIENT
  Age: 53 Year
  Sex: Male

DRUGS (15)
  1. FLUCONAZOLE [Suspect]
     Indication: CANDIDIASIS
     Dosage: FIRST DAY:  400 MG, INTRAVENOUS; SECOND DAY: 200 MG WITHOUT HAEMODIALYSIS, INTRAVENOUS
     Route: 042
  2. LEVOFLOXACIN (NGX) (LEVOFLOXACIN) [Suspect]
     Indication: PNEUMONIA
     Dosage: FIRST TWO DAYS: 250 MG, THEN 125 MG, INTRAVENOUS
     Route: 042
  3. ACETYLSALICYLIC ACID (ACETYLSALYLIC ACID) [Concomitant]
  4. METOPROLOL TARTRATE [Concomitant]
  5. WARFARIN SODIUM [Concomitant]
  6. FLUVASTATIN(FLUVASTATIN) [Concomitant]
  7. ISOPHANE INSULIN (ISOPHANE INSULIN) [Concomitant]
  8. NEPHROCAPS (FOLIC ACID, VITAMINS NOS) [Concomitant]
  9. SEVELAMER (SEVELAMER) [Concomitant]
  10. ALBUTEROL [Concomitant]
  11. OXYGEN THERAPY [Concomitant]
  12. LISINOPRIL [Concomitant]
  13. CLOPIDOGREL BISULFATE [Concomitant]
  14. PANTOPRAZOLE (PANTOPRAZOLE) [Concomitant]
  15. AMLODIPINE [Concomitant]

REACTIONS (4)
  - BRADYARRHYTHMIA [None]
  - DRUG INTERACTION [None]
  - MEDICATION ERROR [None]
  - TORSADE DE POINTES [None]
